FAERS Safety Report 7381416-0 (Version None)
Quarter: 2011Q1

REPORT INFORMATION
  Report Type: 
  Country: None (occurrence: None)
  Receive Date: 20110321
  Receipt Date: 20110303
  Transmission Date: 20110831
  Serious: No
  Sender: FDA-Public Use
  Company Number: TCI2010A03361

PATIENT
  Age: 74 Year
  Sex: Female

DRUGS (4)
  1. DIOVAN [Concomitant]
  2. ACTOS [Suspect]
     Indication: TYPE 2 DIABETES MELLITUS
     Dosage: 15 MG (15 MG, 1 D) PER ORAL
     Route: 048
     Dates: start: 20080724
  3. DOXAZOSIN MESYLATE [Concomitant]
  4. AMLODIPINE [Concomitant]

REACTIONS (3)
  - CHEST DISCOMFORT [None]
  - ANGINA PECTORIS [None]
  - CORONARY ARTERY STENOSIS [None]
